FAERS Safety Report 11862615 (Version 1)
Quarter: 2015Q4

REPORT INFORMATION
  Report Type: Report from Study
  Country: IL (occurrence: IL)
  Receive Date: 20151223
  Receipt Date: 20151223
  Transmission Date: 20160305
  Serious: Yes (Other)
  Sender: FDA-Public Use
  Company Number: IL-ROCHE-1680724

PATIENT

DRUGS (4)
  1. RITUXIMAB [Suspect]
     Active Substance: RITUXIMAB
     Indication: DIFFUSE LARGE B-CELL LYMPHOMA REFRACTORY
     Dosage: OM DAY 0
     Route: 042
  2. ETOPOSIDE. [Suspect]
     Active Substance: ETOPOSIDE
     Indication: DIFFUSE LARGE B-CELL LYMPHOMA REFRACTORY
     Dosage: ON DAY 1-3
     Route: 065
  3. CARBOPLATIN. [Suspect]
     Active Substance: CARBOPLATIN
     Indication: DIFFUSE LARGE B-CELL LYMPHOMA REFRACTORY
     Dosage: (DOSE=5X[25 + CREATININE CLEARANCE], CAPPED AT 800 MG)
     Route: 065
  4. IFOSFAMIDE. [Suspect]
     Active Substance: IFOSFAMIDE
     Indication: DIFFUSE LARGE B-CELL LYMPHOMA REFRACTORY
     Dosage: 5000 MG/M2, MIXED WITH AN EQUAL DOSE OF MESNA ADMINISTRATED BY CONTINUOUS INFUSION OVER 24 H) ON DAY
     Route: 065

REACTIONS (4)
  - Neutropenia [Unknown]
  - Renal failure [Unknown]
  - Thrombocytopenia [Unknown]
  - Febrile neutropenia [Unknown]
